FAERS Safety Report 8583813-4 (Version None)
Quarter: 2012Q3

REPORT INFORMATION
  Report Type: 
  Country: None (occurrence: None)
  Receive Date: 20120810
  Receipt Date: 20120730
  Transmission Date: 20120928
  Serious: Yes (Other)
  Sender: FDA-Public Use
  Company Number: JP-009507513-1207JPN012687

PATIENT

DRUGS (6)
  1. TELAVIC [Suspect]
     Indication: HEPATITIS C
     Route: 048
     Dates: start: 20120508, end: 20120711
  2. GASMOTIN [Concomitant]
     Indication: PROPHYLAXIS
     Route: 048
  3. REBETOL [Suspect]
     Route: 048
     Dates: start: 20120529, end: 20120703
  4. PEG-INTRON [Suspect]
     Indication: HEPATITIS C
     Dosage: 1.5MCG/KG/WEEK
     Route: 058
     Dates: start: 20120508, end: 20120703
  5. REBETOL [Suspect]
     Indication: HEPATITIS C
     Route: 048
     Dates: start: 20120508, end: 20120517
  6. REBETOL [Suspect]
     Route: 048
     Dates: start: 20120518, end: 20120528

REACTIONS (3)
  - WHITE BLOOD CELL COUNT DECREASED [None]
  - BLOOD CREATININE INCREASED [None]
  - ANAEMIA [None]
